FAERS Safety Report 9813051 (Version 1)
Quarter: 2014Q1

REPORT INFORMATION
  Report Type: Spontaneous
  Country: US (occurrence: US)
  Receive Date: 20140113
  Receipt Date: 20140113
  Transmission Date: 20141002
  Serious: Yes (Death)
  Sender: FDA-Public Use
  Company Number: US-PFIZER INC-2014005379

PATIENT
  Age: 43 Year
  Sex: Male

DRUGS (7)
  1. OXYCODONE HYDROCHLORIDE [Suspect]
     Route: 065
  2. GABAPENTIN [Suspect]
     Route: 065
  3. METOPROLOL [Suspect]
     Route: 065
  4. RISPERIDONE [Suspect]
     Route: 065
  5. CLONIDINE [Suspect]
     Route: 065
  6. AMITRIPTYLINE [Suspect]
     Route: 065
  7. BUSPIRONE [Suspect]
     Route: 065

REACTIONS (3)
  - Death [Fatal]
  - Cardiac arrest [Fatal]
  - Respiratory arrest [Fatal]
